FAERS Safety Report 16529565 (Version 2)
Quarter: 2019Q3

REPORT INFORMATION
  Report Type: Spontaneous
  Country: US (occurrence: US)
  Receive Date: 20190703
  Receipt Date: 20190801
  Transmission Date: 20191004
  Serious: Yes (Other)
  Sender: FDA-Public Use
  Company Number: US-TEVA-2019-US-1070459

PATIENT
  Age: 44 Year
  Sex: Female

DRUGS (1)
  1. CYCLOSPORINE. [Suspect]
     Active Substance: CYCLOSPORINE
     Indication: DERMATITIS CONTACT
     Route: 065

REACTIONS (2)
  - Therapeutic product cross-reactivity [Unknown]
  - Dermatitis contact [Recovering/Resolving]
